FAERS Safety Report 4592117-6 (Version None)
Quarter: 2005Q1

REPORT INFORMATION
  Report Type: 
  Country: None (occurrence: None)
  Receive Date: 20050125
  Receipt Date: 20040830
  Transmission Date: 20050727
  Serious: No
  Sender: FDA-Public Use
  Company Number: USA040875599

PATIENT
  Age: 72 Year
  Sex: Female
  Weight: 66 kg

DRUGS (3)
  1. FORTEO [Suspect]
     Indication: OSTEOPOROSIS
     Dosage: 20 UG/1 DAY
     Dates: start: 20040829
  2. SALINE (SODIUM CHLORIDE) [Suspect]
     Indication: OSTEOPOROSIS
     Dates: start: 20040804, end: 20040829
  3. CALCIUM PLUS D [Concomitant]

REACTIONS (4)
  - DIFFICULTY IN WALKING [None]
  - INJECTION SITE PAIN [None]
  - MEDICATION ERROR [None]
  - PAIN IN EXTREMITY [None]
